FAERS Safety Report 7471579-0 (Version None)
Quarter: 2011Q2

REPORT INFORMATION
  Report Type: 
  Country: None (occurrence: None)
  Receive Date: 20110511
  Receipt Date: 20110418
  Transmission Date: 20111010
  Serious: Yes (Hospitalization, Other)
  Sender: FDA-Public Use
  Company Number: US-BAYER-201027428NA

PATIENT
  Age: 17 Year
  Sex: Female
  Weight: 69.5 kg

DRUGS (8)
  1. PREDNISONE [Concomitant]
     Route: 048
  2. VICODIN [Concomitant]
     Indication: COSTOCHONDRITIS
  3. LORTAB [Concomitant]
     Route: 048
  4. FEOSOL [Concomitant]
     Dosage: 500 MG, UNK
     Route: 048
  5. YASMIN [Suspect]
     Indication: ACNE
     Dosage: UNK UNK, UNK
     Route: 048
     Dates: start: 20040107, end: 20040901
  6. PENTASA [Concomitant]
     Dosage: 250 MG, UNK
     Route: 048
  7. ANTIBIOTICS [Concomitant]
     Indication: PNEUMONIA
  8. MERCAPTOPURINE [Concomitant]
     Dosage: 75 MG, QD
     Route: 048
     Dates: start: 20040706

REACTIONS (5)
  - PULMONARY EMBOLISM [None]
  - PULMONARY VENO-OCCLUSIVE DISEASE [None]
  - PALPITATIONS [None]
  - INJURY [None]
  - EXERCISE TOLERANCE DECREASED [None]
